FAERS Safety Report 7587736-9 (Version None)
Quarter: 2011Q3

REPORT INFORMATION
  Report Type: 
  Country: None (occurrence: None)
  Receive Date: 20110704
  Receipt Date: 20110622
  Transmission Date: 20111222
  Serious: Yes (Death, Hospitalization)
  Sender: FDA-Public Use
  Company Number: JP-AMGEN-JPNCT2010011103

PATIENT
  Age: 72 Year
  Sex: Male
  Weight: 54 kg

DRUGS (12)
  1. PANITUMUMAB [Suspect]
     Indication: COLORECTAL CANCER
     Dosage: 6 MG/KG, Q2WK
     Route: 041
     Dates: start: 20101021, end: 20101202
  2. ALMETA [Concomitant]
     Route: 062
  3. HIRUDOID [Concomitant]
     Route: 062
  4. CORTICOSTEROIDS [Concomitant]
     Indication: PROPHYLAXIS
     Route: 065
  5. FLUOROURACIL [Suspect]
     Route: 041
     Dates: start: 20101021
  6. MYSER [Concomitant]
     Route: 062
  7. OXALIPLATIN [Suspect]
     Indication: COLORECTAL CANCER
     Route: 041
     Dates: start: 20101021
  8. FLUOROURACIL [Suspect]
     Indication: COLORECTAL CANCER
     Route: 040
     Dates: start: 20101021
  9. LEUCOVORIN CALCIUM [Suspect]
     Indication: COLORECTAL CANCER
     Route: 041
     Dates: start: 20101021
  10. ANTIHISTAMINES [Concomitant]
     Indication: PROPHYLAXIS
     Route: 065
  11. PANITUMUMAB [Suspect]
     Dosage: 1.8 MG/KG, Q2WK
     Route: 041
     Dates: start: 20101221
  12. RINDERON-VG [Concomitant]
     Route: 062

REACTIONS (5)
  - STOMATITIS [None]
  - COLORECTAL CANCER [None]
  - DUODENAL ULCER [None]
  - PNEUMONITIS [None]
  - DERMATITIS ACNEIFORM [None]
